FAERS Safety Report 23836533 (Version 1)
Quarter: 2024Q2

REPORT INFORMATION
  Report Type: Spontaneous
  Country: GB (occurrence: GB)
  Receive Date: 20240509
  Receipt Date: 20240509
  Transmission Date: 20240716
  Serious: Yes (Hospitalization)
  Sender: FDA-Public Use
  Company Number: GB-PFIZER INC-PV202400059986

PATIENT
  Age: 31 Year
  Sex: Male

DRUGS (2)
  1. XELJANZ [Suspect]
     Active Substance: TOFACITINIB CITRATE
     Indication: Gastrointestinal disorder
     Dosage: 5 MG, 2X/DAY
     Route: 048
     Dates: start: 20240508
  2. XELJANZ [Suspect]
     Active Substance: TOFACITINIB CITRATE
     Dosage: 10MG 2X/DAY (DOSE INCREASED)

REACTIONS (1)
  - Condition aggravated [Unknown]
